FAERS Safety Report 10590881 (Version 1)
Quarter: 2014Q4

REPORT INFORMATION
  Report Type: Spontaneous
  Country: US (occurrence: US)
  Receive Date: 20141118
  Receipt Date: 20141118
  Transmission Date: 20150529
  Serious: Yes (Hospitalization)
  Sender: FDA-Public Use
  Company Number: US-GILEAD-2014-0122863

PATIENT
  Age: 76 Year
  Sex: Male

DRUGS (16)
  1. AMIODARONE [Concomitant]
     Active Substance: AMIODARONE
  2. LASIX [Concomitant]
     Active Substance: FUROSEMIDE
  3. VITAMINS NOS [Concomitant]
     Active Substance: VITAMINS
  4. LETAIRIS [Suspect]
     Active Substance: AMBRISENTAN
     Indication: PULMONARY HYPERTENSION
     Dosage: 5 MG, QD
     Route: 065
     Dates: start: 20120510
  5. ADCIRCA [Suspect]
     Active Substance: TADALAFIL
     Indication: PULMONARY HYPERTENSION
     Route: 065
  6. XARELTO [Concomitant]
     Active Substance: RIVAROXABAN
  7. LIPITOR [Concomitant]
     Active Substance: ATORVASTATIN CALCIUM
  8. METOLAZONE. [Concomitant]
     Active Substance: METOLAZONE
  9. LISINOPRIL. [Concomitant]
     Active Substance: LISINOPRIL
  10. LEVOTHYROXINE [Concomitant]
     Active Substance: LEVOTHYROXINE
  11. CARVEDILOL. [Concomitant]
     Active Substance: CARVEDILOL
  12. KLOR-CON [Concomitant]
     Active Substance: POTASSIUM CHLORIDE
  13. AMBIEN [Concomitant]
     Active Substance: ZOLPIDEM TARTRATE
  14. XANAX [Concomitant]
     Active Substance: ALPRAZOLAM
  15. NORCO [Concomitant]
     Active Substance: ACETAMINOPHEN\HYDROCODONE BITARTRATE
  16. SINGULAIR [Concomitant]
     Active Substance: MONTELUKAST SODIUM

REACTIONS (1)
  - Haemorrhage [Recovered/Resolved]
